FAERS Safety Report 9303462 (Version 3)
Quarter: 2013Q4

REPORT INFORMATION
  Report Type: Spontaneous
  Country: US (occurrence: None)
  Receive Date: 20130516
  Receipt Date: 20131009
  Transmission Date: 20140711
  Serious: Yes (Other)
  Sender: FDA-Public Use
  Company Number: ADR-2013-00831

PATIENT
  Sex: Female

DRUGS (6)
  1. BACLOFEN [Suspect]
     Indication: PAIN
  2. BACLOFEN [Suspect]
     Indication: BACK PAIN
  3. CLONIDINE [Suspect]
  4. BUPIVACAINE [Concomitant]
  5. SUFENTANIL (ALL INTRATHECAL) [Concomitant]
  6. METFORMIN [Concomitant]

REACTIONS (10)
  - Pain [None]
  - Medical device complication [None]
  - Cardiac disorder [None]
  - Blood glucose increased [None]
  - Local swelling [None]
  - Local swelling [None]
  - Arthralgia [None]
  - Myalgia [None]
  - Movement disorder [None]
  - Vision blurred [None]
